FAERS Safety Report 7528092-1 (Version None)
Quarter: 2011Q2

REPORT INFORMATION
  Report Type: 
  Country: None (occurrence: None)
  Receive Date: 20110607
  Receipt Date: 20110525
  Transmission Date: 20111010
  Serious: Yes (Hospitalization, Other)
  Sender: FDA-Public Use
  Company Number: CA-ELI_LILLY_AND_COMPANY-CA201105007721

PATIENT
  Age: 91 Year
  Sex: Female

DRUGS (13)
  1. FORTEO [Suspect]
     Indication: OSTEOPOROSIS
     Dosage: 20 UG, QD
     Route: 058
     Dates: start: 20110415, end: 20110523
  2. MULTI-VITAMIN [Concomitant]
     Dosage: UNK, UNKNOWN
     Route: 065
  3. ALTACE [Concomitant]
     Dosage: UNK, UNKNOWN
     Route: 065
  4. CELEXA [Concomitant]
     Dosage: UNK, UNKNOWN
     Route: 065
  5. VITAMIN D [Concomitant]
     Dosage: UNK, UNKNOWN
     Route: 065
  6. SPIRONOLACTONE [Concomitant]
     Dosage: UNK, UNKNOWN
     Route: 065
  7. BISOPROLOL FUMARATE [Concomitant]
     Dosage: UNK, UNKNOWN
     Route: 065
  8. PREVACID [Concomitant]
     Dosage: UNK, UNKNOWN
     Route: 065
  9. DIGOXIN [Concomitant]
     Dosage: UNK, UNKNOWN
     Route: 065
  10. SYNTHROID [Concomitant]
     Dosage: UNK, UNKNOWN
     Route: 065
  11. COUMADIN [Concomitant]
     Dosage: UNK, UNKNOWN
     Route: 065
  12. ADVAIR DISKUS 100/50 [Concomitant]
     Dosage: UNK, UNKNOWN
     Route: 065
  13. FUROSEMIDE [Concomitant]
     Dosage: UNK, UNKNOWN
     Route: 065

REACTIONS (4)
  - DIARRHOEA [None]
  - HEART RATE DECREASED [None]
  - FATIGUE [None]
  - DIZZINESS [None]
